FAERS Safety Report 9440380 (Version 1)
Quarter: 2013Q3

REPORT INFORMATION
  Report Type: Spontaneous
  Country: GB (occurrence: GB)
  Receive Date: 20130805
  Receipt Date: 20130805
  Transmission Date: 20140515
  Serious: Yes (Hospitalization)
  Sender: FDA-Public Use
  Company Number: GB-TEVA-421328ISR

PATIENT
  Age: 5 Year
  Sex: Female
  Weight: 23 kg

DRUGS (4)
  1. PREDNISOLONE [Suspect]
     Indication: MULTICENTRIC RETICULOHISTIOCYTOSIS
     Route: 048
     Dates: start: 20130625
  2. PREDNISOLONE [Suspect]
     Indication: MULTICENTRIC RETICULOHISTIOCYTOSIS
     Dosage: 15MG OD FOR 7 DAYS, THEN 10MG OD FOR 7 DAYS THEN 5MD OD FOR 14 DAYS
     Route: 048
  3. PREDNISOLONE [Suspect]
     Indication: MULTICENTRIC RETICULOHISTIOCYTOSIS
     Dosage: 15MG OD FOR 7 DAYS, THEN 10MG OD FOR 7 DAYS THEN 5MD OD FOR 14 DAYS
     Route: 048
  4. METHOTREXATE [Concomitant]
     Indication: JUVENILE IDIOPATHIC ARTHRITIS
     Dates: start: 201305

REACTIONS (2)
  - Abdominal pain [Recovered/Resolved with Sequelae]
  - Headache [Recovered/Resolved with Sequelae]
